FAERS Safety Report 4510478-0 (Version None)
Quarter: 2004Q4

REPORT INFORMATION
  Report Type: 
  Country: None (occurrence: None)
  Receive Date: 20041124
  Receipt Date: 20041112
  Transmission Date: 20050328
  Serious: Yes (Death)
  Sender: FDA-Public Use
  Company Number: FR-GLAXOSMITHKLINE-B0357373A

PATIENT
  Age: 64 Year
  Sex: Female
  Weight: 62 kg

DRUGS (6)
  1. ZOPHREN [Suspect]
     Dosage: 8MG CUMULATIVE DOSE
     Route: 042
     Dates: start: 20040930, end: 20041001
  2. FLUOROURACIL [Suspect]
     Indication: COLON CANCER
     Dosage: 1.8MGM2 PER DAY
     Route: 042
     Dates: start: 20040930, end: 20041001
  3. LEVOTHYROX [Concomitant]
     Route: 065
  4. LEXOMIL [Concomitant]
     Route: 065
  5. LOVENOX [Concomitant]
     Route: 065
  6. PHYSIOTENS [Concomitant]
     Route: 065

REACTIONS (11)
  - BUNDLE BRANCH BLOCK RIGHT [None]
  - CARDIAC ARREST [None]
  - CARDIOGENIC SHOCK [None]
  - CHEST PAIN [None]
  - ELECTROCARDIOGRAM ST SEGMENT ELEVATION [None]
  - HYPERHIDROSIS [None]
  - ILL-DEFINED DISORDER [None]
  - LOSS OF CONSCIOUSNESS [None]
  - MALAISE [None]
  - PULMONARY HYPERTENSION [None]
  - RESPIRATORY ARREST [None]
